FAERS Safety Report 20325066 (Version 2)
Quarter: 2022Q1

REPORT INFORMATION
  Report Type: Spontaneous
  Country: CA (occurrence: CA)
  Receive Date: 20220111
  Receipt Date: 20220202
  Transmission Date: 20220423
  Serious: Yes (Other)
  Sender: FDA-Public Use
  Company Number: CA-JNJFOC-20220112403

PATIENT
  Age: 22 Year
  Sex: Male
  Weight: 81 kg

DRUGS (3)
  1. REMICADE [Suspect]
     Active Substance: INFLIXIMAB
     Indication: Colitis ulcerative
     Route: 042
  2. AZATHIOPRINE [Concomitant]
     Active Substance: AZATHIOPRINE
  3. PREDNISONE [Concomitant]
     Active Substance: PREDNISONE

REACTIONS (4)
  - Heart rate irregular [Not Recovered/Not Resolved]
  - Condition aggravated [Not Recovered/Not Resolved]
  - Drug level decreased [Not Recovered/Not Resolved]
  - Drug ineffective [Unknown]
